FAERS Safety Report 11285201 (Version 1)
Quarter: 2015Q3

REPORT INFORMATION
  Report Type: Report from Study
  Country: US (occurrence: US)
  Receive Date: 20150720
  Receipt Date: 20150720
  Transmission Date: 20151125
  Serious: Yes (Other)
  Sender: FDA-Public Use
  Company Number: US-BAXALTA-2015BAX032398

PATIENT
  Age: 9 Year
  Sex: Male
  Weight: 34.9 kg

DRUGS (3)
  1. OCTOCOG ALFA; BAXJECT III [Suspect]
     Active Substance: ANTIHEMOPHILIC FACTOR, HUMAN RECOMBINANT
     Indication: PROPHYLAXIS
     Dosage: 900 IU, 2X A WEEK, EVERY MONDAY AND WEDNESDAY
     Route: 042
     Dates: start: 200705
  2. OCTOCOG ALFA; BAXJECT III [Suspect]
     Active Substance: ANTIHEMOPHILIC FACTOR, HUMAN RECOMBINANT
     Indication: HAEMOPHILIA
     Dosage: 1800 IU, 1X A WEEK, EVERY FRIDAY
     Route: 042
     Dates: start: 200705
  3. OCTOCOG ALFA; BAXJECT III [Suspect]
     Active Substance: ANTIHEMOPHILIC FACTOR, HUMAN RECOMBINANT
     Dosage: UNK
     Route: 065
     Dates: start: 201502

REACTIONS (1)
  - Haemarthrosis [Recovered/Resolved]

NARRATIVE: CASE EVENT DATE: 201502
